FAERS Safety Report 9196044 (Version 2)
Quarter: 2013Q2

REPORT INFORMATION
  Report Type: Spontaneous
  Country: JP (occurrence: JP)
  Receive Date: 20130328
  Receipt Date: 20130405
  Transmission Date: 20140414
  Serious: Yes (Other)
  Sender: FDA-Public Use
  Company Number: PHHY2013JP030251

PATIENT
  Age: 83 Year
  Sex: Female

DRUGS (1)
  1. NEORAL [Suspect]
     Dosage: 100 MG, DAILY
     Route: 048
     Dates: start: 20130227

REACTIONS (1)
  - Diabetes insipidus [Recovered/Resolved]
